FAERS Safety Report 6593795-2 (Version None)
Quarter: 2010Q1

REPORT INFORMATION
  Report Type: 
  Country: None (occurrence: None)
  Receive Date: 20100222
  Receipt Date: 20100210
  Transmission Date: 20100710
  Serious: Yes (Hospitalization, Other)
  Sender: FDA-Public Use
  Company Number: DE-PFIZER INC-2010021403

PATIENT
  Age: 47 Year
  Sex: Female

DRUGS (5)
  1. ATARAX [Suspect]
     Route: 048
  2. CYMBALTA [Suspect]
     Route: 048
  3. FLUPIRTINE [Suspect]
     Route: 048
  4. TOPAMAX [Suspect]
     Route: 048
  5. TRILEPTAL [Suspect]
     Route: 048

REACTIONS (2)
  - SOMNOLENCE [None]
  - TACHYCARDIA [None]
